FAERS Safety Report 6098239-5 (Version None)
Quarter: 2009Q1

REPORT INFORMATION
  Report Type: 
  Country: None (occurrence: None)
  Receive Date: 20090227
  Receipt Date: 20090224
  Transmission Date: 20090719
  Serious: Yes (Other)
  Sender: FDA-Public Use
  Company Number: US-ABBOTT-09P-163-0559070-00

PATIENT
  Sex: Female

DRUGS (10)
  1. HUMIRA [Suspect]
     Indication: RHEUMATOID ARTHRITIS
     Route: 058
     Dates: start: 20070101, end: 20080601
  2. HUMIRA [Suspect]
     Indication: PSORIASIS
     Route: 058
     Dates: start: 20080101, end: 20080101
  3. HUMIRA [Suspect]
     Route: 058
     Dates: start: 20090101
  4. LORTAB [Concomitant]
     Indication: ARTHRALGIA
     Dosage: 7.5/500
     Route: 048
  5. PRILOSEC [Concomitant]
     Indication: DRUG USE FOR UNKNOWN INDICATION
     Route: 048
  6. CITRACAL + D [Concomitant]
     Indication: DRUG USE FOR UNKNOWN INDICATION
     Route: 048
  7. DOXEPIN HCL [Concomitant]
     Indication: PRURITUS
     Route: 048
  8. DOXEPIN HCL [Concomitant]
     Indication: PSORIASIS
  9. FEMARA [Concomitant]
     Indication: BREAST CANCER
     Route: 048
  10. FLEXERIL [Concomitant]
     Indication: MYALGIA
     Route: 048

REACTIONS (7)
  - ABDOMINAL ADHESIONS [None]
  - DRUG INEFFECTIVE [None]
  - FUNGAL INFECTION [None]
  - GENERALISED OEDEMA [None]
  - INTESTINAL OBSTRUCTION [None]
  - NASAL POLYPECTOMY [None]
  - PAIN [None]
